FAERS Safety Report 19421433 (Version 1)
Quarter: 2021Q2

REPORT INFORMATION
  Report Type: Spontaneous
  Country: FR (occurrence: FR)
  Receive Date: 20210615
  Receipt Date: 20210615
  Transmission Date: 20210717
  Serious: Yes (Other)
  Sender: FDA-Public Use
  Company Number: NVSC2021FR126362

PATIENT
  Age: 47 Year
  Sex: Female
  Weight: 55 kg

DRUGS (1)
  1. AMOXICILLINE [Suspect]
     Active Substance: AMOXICILLIN
     Indication: TOOTH INFECTION
     Dosage: 3 G, QD
     Route: 048
     Dates: start: 20180417, end: 20180420

REACTIONS (81)
  - Madarosis [Recovered/Resolved]
  - Temperature regulation disorder [Not Recovered/Not Resolved]
  - Vertigo [Not Recovered/Not Resolved]
  - Gingival recession [Not Recovered/Not Resolved]
  - Balance disorder [Not Recovered/Not Resolved]
  - Immunodeficiency [Not Recovered/Not Resolved]
  - Ectropion [Not Recovered/Not Resolved]
  - Pollakiuria [Not Recovered/Not Resolved]
  - Tetany [Not Recovered/Not Resolved]
  - Anal incontinence [Recovered/Resolved]
  - Vaginal discharge [Not Recovered/Not Resolved]
  - Cerebrovascular accident [Recovered/Resolved with Sequelae]
  - Laryngitis [Not Recovered/Not Resolved]
  - Hallucination, visual [Recovered/Resolved]
  - Foot deformity [Not Recovered/Not Resolved]
  - Skin discolouration [Recovered/Resolved]
  - Impaired healing [Not Recovered/Not Resolved]
  - Amyotrophy [Not Recovered/Not Resolved]
  - Blepharospasm [Recovered/Resolved]
  - Polyneuropathy [Not Recovered/Not Resolved]
  - Haemorrhage [Not Recovered/Not Resolved]
  - Pharyngitis [Not Recovered/Not Resolved]
  - Paraesthesia [Not Recovered/Not Resolved]
  - Heavy menstrual bleeding [Not Recovered/Not Resolved]
  - Hyperacusis [Not Recovered/Not Resolved]
  - Dry eye [Not Recovered/Not Resolved]
  - Premature ageing [Not Recovered/Not Resolved]
  - Haematoma [Not Recovered/Not Resolved]
  - Autonomic nervous system imbalance [Not Recovered/Not Resolved]
  - Myalgia [Not Recovered/Not Resolved]
  - Nasal congestion [Not Recovered/Not Resolved]
  - Dysaesthesia [Not Recovered/Not Resolved]
  - Polydipsia [Not Recovered/Not Resolved]
  - Chalazion [Recovered/Resolved]
  - Haematidrosis [Not Recovered/Not Resolved]
  - Phobia [Not Recovered/Not Resolved]
  - Urinary incontinence [Not Recovered/Not Resolved]
  - Disturbance in attention [Not Recovered/Not Resolved]
  - Aphthous ulcer [Not Recovered/Not Resolved]
  - Photopsia [Not Recovered/Not Resolved]
  - Anal fissure [Not Recovered/Not Resolved]
  - Eyelid ptosis [Not Recovered/Not Resolved]
  - Libido decreased [Not Recovered/Not Resolved]
  - Bone pain [Recovered/Resolved]
  - Oral mucosal discolouration [Not Recovered/Not Resolved]
  - Dysphagia [Not Recovered/Not Resolved]
  - Aphasia [Not Recovered/Not Resolved]
  - Hyperhidrosis [Not Recovered/Not Resolved]
  - Burning sensation [Not Recovered/Not Resolved]
  - Ear haemorrhage [Recovered/Resolved]
  - Madarosis [Not Recovered/Not Resolved]
  - Tremor [Not Recovered/Not Resolved]
  - Tachycardia [Recovered/Resolved]
  - Misophonia [Not Recovered/Not Resolved]
  - Sleep apnoea syndrome [Recovered/Resolved]
  - Parosmia [Not Recovered/Not Resolved]
  - Arthralgia [Not Recovered/Not Resolved]
  - Blood urine present [Not Recovered/Not Resolved]
  - Hypoacusis [Not Recovered/Not Resolved]
  - Bradycardia [Recovered/Resolved]
  - Hypergeusia [Not Recovered/Not Resolved]
  - Exaggerated startle response [Recovered/Resolved]
  - Chorioretinitis [Not Recovered/Not Resolved]
  - Tinnitus [Not Recovered/Not Resolved]
  - Affect lability [Not Recovered/Not Resolved]
  - Granuloma [Recovered/Resolved]
  - Lipoma [Not Recovered/Not Resolved]
  - Skin fragility [Not Recovered/Not Resolved]
  - Disorientation [Not Recovered/Not Resolved]
  - Entropion [Not Recovered/Not Resolved]
  - Muscle spasticity [Recovered/Resolved]
  - Clonic convulsion [Not Recovered/Not Resolved]
  - Tourette^s disorder [Recovered/Resolved]
  - Headache [Not Recovered/Not Resolved]
  - Sensory loss [Not Recovered/Not Resolved]
  - Alopecia [Not Recovered/Not Resolved]
  - Dysuria [Recovered/Resolved]
  - Hallucination, auditory [Recovered/Resolved]
  - Amnesia [Not Recovered/Not Resolved]
  - Headache [Recovered/Resolved]
  - Feeling abnormal [Not Recovered/Not Resolved]

NARRATIVE: CASE EVENT DATE: 2018
